FAERS Safety Report 9975537 (Version 1)
Quarter: 2014Q1

REPORT INFORMATION
  Report Type: Report from Study
  Country: US (occurrence: US)
  Receive Date: 20140306
  Receipt Date: 20140306
  Transmission Date: 20141002
  Serious: No
  Sender: FDA-Public Use
  Company Number: US-ABBVIE-13P-163-1155907-00

PATIENT
  Age: 57 Year
  Sex: Male

DRUGS (9)
  1. HUMIRA [Suspect]
     Indication: ANKYLOSING SPONDYLITIS
     Dates: start: 201308
  2. CELEBREX [Concomitant]
     Indication: PRODUCT USED FOR UNKNOWN INDICATION
     Dosage: 200 MILLIGRAMS DAILY
  3. CARVEDILOL [Concomitant]
     Indication: CARDIAC DISORDER
     Dosage: 2 IN THE MORNING AND 2 AT NIGHT
  4. CRESTOR [Concomitant]
     Indication: BLOOD CHOLESTEROL
     Dosage: 20 MILLIGRAMS DAILY
  5. LYRICA [Concomitant]
     Indication: PRODUCT USED FOR UNKNOWN INDICATION
  6. LEVOTHYROXINE [Concomitant]
     Indication: PRODUCT USED FOR UNKNOWN INDICATION
     Dosage: 150 DAILY
  7. AMBIEN [Concomitant]
     Indication: SLEEP DISORDER
  8. OXYCODONE [Concomitant]
     Indication: PAIN
  9. UNKNOWN MEDICINE [Concomitant]
     Indication: BLOOD PRESSURE INCREASED

REACTIONS (2)
  - Sinus disorder [Recovering/Resolving]
  - Nasal congestion [Recovering/Resolving]
